FAERS Safety Report 23630437 (Version 3)
Quarter: 2024Q2

REPORT INFORMATION
  Report Type: Report from Study
  Country: US (occurrence: US)
  Receive Date: 20240314
  Receipt Date: 20240624
  Transmission Date: 20240716
  Serious: Yes (Other)
  Sender: FDA-Public Use
  Company Number: US-ABBVIE-5677559

PATIENT
  Sex: Male

DRUGS (3)
  1. SKYRIZI [Suspect]
     Active Substance: RISANKIZUMAB-RZAA
     Indication: Psoriasis
     Dosage: WEEK 0??FORM STRENGTH: 150 MG/ML 1
     Route: 058
     Dates: start: 202402, end: 202402
  2. SKYRIZI [Suspect]
     Active Substance: RISANKIZUMAB-RZAA
     Dosage: WEEK 4??FORM STRENGTH: 150 MG/ML 1
     Route: 058
     Dates: start: 20240305, end: 20240305
  3. SKYRIZI [Suspect]
     Active Substance: RISANKIZUMAB-RZAA
     Dosage: FORM STRENGTH: 150 MG/ML 1
     Route: 058
     Dates: start: 2024

REACTIONS (3)
  - Myocardial infarction [Recovered/Resolved]
  - Psoriasis [Recovered/Resolved]
  - Emotional disorder [Unknown]

NARRATIVE: CASE EVENT DATE: 20240101
